FAERS Safety Report 18940981 (Version 1)
Quarter: 2021Q1

REPORT INFORMATION
  Report Type: Spontaneous
  Country: US (occurrence: US)
  Receive Date: 20210225
  Receipt Date: 20210225
  Transmission Date: 20210420
  Serious: No
  Sender: FDA-Public Use
  Company Number: US-MYLANLABS-2021M1010120

PATIENT
  Age: 77 Year
  Sex: Male

DRUGS (1)
  1. RIVASTIGMINE TRANSDERMAL SYSTEM [Suspect]
     Active Substance: RIVASTIGMINE
     Indication: DEMENTIA
     Dosage: 4.6 MILLIGRAM, QD
     Route: 062
     Dates: start: 20210209

REACTIONS (3)
  - Product size issue [Unknown]
  - Device difficult to use [Unknown]
  - Product substitution issue [Unknown]

NARRATIVE: CASE EVENT DATE: 202102
